FAERS Safety Report 7667843-2 (Version None)
Quarter: 2011Q3

REPORT INFORMATION
  Report Type: 
  Country: None (occurrence: None)
  Receive Date: 20110806
  Receipt Date: 20110613
  Transmission Date: 20111222
  Serious: No
  Sender: FDA-Public Use
  Company Number: US-ABBOTT-11P-163-0732016-00

PATIENT
  Sex: Female
  Weight: 63.56 kg

DRUGS (7)
  1. COUMADIN [Concomitant]
     Indication: THROMBOSIS
  2. KLONOPIN [Concomitant]
     Indication: INSOMNIA
  3. UNKNOWN  MEDICATION [Concomitant]
     Indication: CONSTIPATION
  4. NIASPAN [Suspect]
     Indication: BLOOD CHOLESTEROL INCREASED
     Route: 048
     Dates: start: 20110301, end: 20110301
  5. NEXIUM [Concomitant]
     Indication: GASTROOESOPHAGEAL REFLUX DISEASE
  6. LEVOTHYROXINE SODIUM [Concomitant]
     Indication: THYROID FUNCTION TEST ABNORMAL
  7. NIASPAN [Suspect]
     Route: 048
     Dates: start: 20110601

REACTIONS (2)
  - PALPITATIONS [None]
  - MYALGIA [None]
